FAERS Safety Report 22013128 (Version 2)
Quarter: 2023Q1

REPORT INFORMATION
  Report Type: Spontaneous
  Country: US (occurrence: US)
  Receive Date: 20230220
  Receipt Date: 20230222
  Transmission Date: 20230418
  Serious: Yes (Other)
  Sender: FDA-Public Use
  Company Number: US-ALLERGAN-2304530US

PATIENT
  Sex: Male

DRUGS (2)
  1. REFRESH PLUS [Suspect]
     Active Substance: CARBOXYMETHYLCELLULOSE SODIUM
     Indication: Product used for unknown indication
     Dosage: UNK
     Route: 047
     Dates: start: 20230211, end: 20230213
  2. REFRESH PLUS [Suspect]
     Active Substance: CARBOXYMETHYLCELLULOSE SODIUM
     Dosage: UNK
     Route: 047

REACTIONS (11)
  - Cataract [Unknown]
  - Condition aggravated [Not Recovered/Not Resolved]
  - Eye disorder [Not Recovered/Not Resolved]
  - Eye pain [Unknown]
  - Ocular hyperaemia [Unknown]
  - Lacrimation increased [Unknown]
  - Eye swelling [Unknown]
  - Eye discharge [Not Recovered/Not Resolved]
  - Vision blurred [Unknown]
  - Eye pruritus [Not Recovered/Not Resolved]
  - Hypersensitivity [Unknown]

NARRATIVE: CASE EVENT DATE: 20230201
